FAERS Safety Report 8288296-X (Version None)
Quarter: 2012Q2

REPORT INFORMATION
  Report Type: 
  Country: None (occurrence: None)
  Receive Date: 20120416
  Receipt Date: 20120411
  Transmission Date: 20120825
  Serious: Yes (Other)
  Sender: FDA-Public Use
  Company Number: PHHY2012TN030917

PATIENT
  Age: 4 Year
  Sex: Male

DRUGS (2)
  1. CEFOTAXIME [Suspect]
  2. COTRIM [Suspect]

REACTIONS (1)
  - VASCULITIS [None]
